FAERS Safety Report 7678127-0 (Version None)
Quarter: 2011Q3

REPORT INFORMATION
  Report Type: 
  Country: None (occurrence: None)
  Receive Date: 20110811
  Receipt Date: 20110802
  Transmission Date: 20111222
  Serious: Yes (Hospitalization)
  Sender: FDA-Public Use
  Company Number: CN-SANOFI-AVENTIS-2011SA049176

PATIENT
  Age: 69 Year
  Sex: Male
  Weight: 90 kg

DRUGS (4)
  1. AMLODIPINE BESYLATE [Concomitant]
     Indication: HYPERTENSION
     Route: 048
     Dates: start: 20040101
  2. PLAVIX [Suspect]
     Indication: PROPHYLAXIS
     Route: 048
     Dates: start: 20101101, end: 20110201
  3. BETALOC [Concomitant]
     Indication: HYPERTENSION
     Route: 048
  4. PLAVIX [Suspect]
     Route: 048
     Dates: start: 20110201

REACTIONS (3)
  - PLATELET COUNT INCREASED [None]
  - PRODUCT COUNTERFEIT [None]
  - EXTRASYSTOLES [None]
